FAERS Safety Report 4651280-9 (Version None)
Quarter: 2005Q2

REPORT INFORMATION
  Report Type: 
  Country: None (occurrence: None)
  Receive Date: 20050503
  Receipt Date: 20050426
  Transmission Date: 20051028
  Serious: Yes (Hospitalization)
  Sender: FDA-Public Use
  Company Number: US-BRISTOL-MYERS SQUIBB COMPANY-12947313

PATIENT
  Age: 60 Year
  Sex: Female
  Weight: 74 kg

DRUGS (2)
  1. CETUXIMAB [Suspect]
     Indication: PANCREATIC CARCINOMA
     Dosage: LAST ADMINISTERED 04-APR-05 (260 MG THIS COURSE), START DATE COURSE 1: 06-DEC-04. PREVIOUSLY HELD.
     Dates: start: 20050404, end: 20050404
  2. GEMCITABINE [Suspect]
     Indication: PANCREATIC CARCINOMA
     Dosage: COURSE 5 (TOTAL DOSE THIS COURSE 975 MG), START DATE 1ST COURSE 06-DEC-04, PREVIOUSLY HELD.
     Dates: start: 20050411, end: 20050411

REACTIONS (3)
  - PSYCHOTIC DISORDER [None]
  - SEPSIS [None]
  - URINARY TRACT INFECTION [None]
